FAERS Safety Report 18462603 (Version 1)
Quarter: 2020Q4

REPORT INFORMATION
  Report Type: Spontaneous
  Country: AR (occurrence: AR)
  Receive Date: 20201104
  Receipt Date: 20201104
  Transmission Date: 20210114
  Serious: Yes (Other)
  Sender: FDA-Public Use
  Company Number: AR-PFIZER INC-2020329500

PATIENT
  Age: 83 Year
  Sex: Female

DRUGS (1)
  1. SUTENT [Suspect]
     Active Substance: SUNITINIB MALATE
     Indication: RENAL CANCER
     Dosage: UNK
     Dates: start: 20200217, end: 202008

REACTIONS (6)
  - Anaemia [Unknown]
  - Platelet count decreased [Unknown]
  - Asthenia [Unknown]
  - Spinal cord disorder [Unknown]
  - Thrombosis [Unknown]
  - Red blood cell abnormality [Unknown]

NARRATIVE: CASE EVENT DATE: 202008
